FAERS Safety Report 6544517-2 (Version None)
Quarter: 2010Q1

REPORT INFORMATION
  Report Type: 
  Country: None (occurrence: None)
  Receive Date: 20100120
  Receipt Date: 20100120
  Transmission Date: 20100710
  Serious: Yes (Hospitalization)
  Sender: FDA-Public Use
  Company Number: None

PATIENT
  Sex: Female
  Weight: 29.6 kg

DRUGS (6)
  1. METHOTREXATE [Suspect]
     Dosage: 1056 MG
  2. PEG-L-ASPARAGINASE (K-H) [Suspect]
     Dosage: 6175 IU
  3. VINCRISTINE SULFATE [Suspect]
     Dosage: 9 MG
  4. BACTRIM [Concomitant]
  5. FLUCONAZOLE [Concomitant]
  6. REMERON [Concomitant]

REACTIONS (3)
  - HYPOPHAGIA [None]
  - MALNUTRITION [None]
  - WEIGHT DECREASED [None]
